FAERS Safety Report 22052244 (Version 2)
Quarter: 2023Q1

REPORT INFORMATION
  Report Type: Other
  Country: US (occurrence: None)
  Receive Date: 20230302
  Receipt Date: 20230307
  Transmission Date: 20230418
  Serious: Yes (Hospitalization)
  Sender: FDA-Public Use
  Company Number: US-ROCHE-3293970

PATIENT
  Age: 32 Year
  Sex: Female
  Weight: 72.640 kg

DRUGS (7)
  1. OCREVUS [Suspect]
     Active Substance: OCRELIZUMAB
     Indication: Relapsing multiple sclerosis
     Dosage: DOT: 20/OCT/2021
     Route: 042
     Dates: start: 20201020
  2. GABAPENTIN [Concomitant]
     Active Substance: GABAPENTIN
     Indication: Electric shock sensation
     Dosage: MAY HAVE STARTED MAY-2020, AUG-2020 OR SEP-2020. PATIENT IS NOT SURE; ONGOING: YES
     Route: 048
     Dates: start: 2020
  3. BACLOFEN [Concomitant]
     Active Substance: BACLOFEN
     Indication: Muscle spasticity
     Dosage: YES
     Route: 048
     Dates: start: 202005
  4. ERGOCALCIFEROL [Concomitant]
     Active Substance: ERGOCALCIFEROL
     Indication: Vitamin D decreased
     Route: 048
     Dates: start: 202005
  5. VITAMIN B12 [Concomitant]
     Active Substance: CYANOCOBALAMIN
     Route: 048
     Dates: start: 202005
  6. VITAMIN C [Concomitant]
     Active Substance: ASCORBIC ACID
     Dosage: TAKES IT WHEN SHE REMEMBERS, ONCE OR TWICE A WEEK. ;ONGOING: YES
     Route: 048
  7. ZINC [Concomitant]
     Active Substance: ZINC

REACTIONS (8)
  - Abdominal pain upper [Recovered/Resolved]
  - Weight decreased [Recovering/Resolving]
  - Upper respiratory tract infection [Recovered/Resolved]
  - Pain in extremity [Not Recovered/Not Resolved]
  - COVID-19 [Recovered/Resolved]
  - Ear infection [Recovered/Resolved]
  - Pain of skin [Not Recovered/Not Resolved]
  - Abdominal distension [Not Recovered/Not Resolved]

NARRATIVE: CASE EVENT DATE: 20211001
